FAERS Safety Report 9294813 (Version 2)
Quarter: 2013Q2

REPORT INFORMATION
  Report Type: Spontaneous
  Country: TR (occurrence: TR)
  Receive Date: 20130517
  Receipt Date: 20130520
  Transmission Date: 20140414
  Serious: Yes (Death, Hospitalization, Other)
  Sender: FDA-Public Use
  Company Number: TR-ROCHE-1223654

PATIENT
  Age: 83 Year
  Sex: Male

DRUGS (6)
  1. LUCENTIS [Suspect]
     Indication: PRODUCT USED FOR UNKNOWN INDICATION
     Route: 050
     Dates: start: 20121002
  2. LUCENTIS [Suspect]
     Route: 050
     Dates: start: 20121009
  3. LUCENTIS [Suspect]
     Route: 050
     Dates: start: 20121106
  4. LUCENTIS [Suspect]
     Route: 050
     Dates: start: 20121113
  5. LUCENTIS [Suspect]
     Route: 050
     Dates: start: 20121204
  6. LUCENTIS [Suspect]
     Route: 050
     Dates: start: 20121211

REACTIONS (9)
  - Cerebrovascular accident [Fatal]
  - Cardio-respiratory arrest [Fatal]
  - Sinusitis [Unknown]
  - Blood thyroid stimulating hormone decreased [Unknown]
  - Vitamin B12 decreased [Unknown]
  - Red blood cell sedimentation rate increased [Unknown]
  - Iron binding capacity unsaturated [Unknown]
  - International normalised ratio increased [Unknown]
  - Inappropriate schedule of drug administration [Unknown]
